APPROVED DRUG PRODUCT: CLINDAMYCIN PHOSPHATE IN DEXTROSE 5%
Active Ingredient: CLINDAMYCIN PHOSPHATE
Strength: EQ 12MG BASE/ML
Dosage Form/Route: INJECTABLE;INJECTION
Application: A214401 | Product #002 | TE Code: AP
Applicant: HIKMA PHARMACEUTICALS USA INC
Approved: Apr 5, 2023 | RLD: No | RS: No | Type: RX